FAERS Safety Report 7516969-2 (Version None)
Quarter: 2011Q2

REPORT INFORMATION
  Report Type: 
  Country: None (occurrence: None)
  Receive Date: 20110601
  Receipt Date: 20110531
  Transmission Date: 20111010
  Serious: No
  Sender: FDA-Public Use
  Company Number: US-B.I. PHARMACEUTICALS,INC./RIDGEFIELD-2011-BP-12181BP

PATIENT
  Sex: Male

DRUGS (7)
  1. COUMADIN [Concomitant]
     Route: 048
  2. TAMSULOSIN HCL [Concomitant]
     Indication: PROSTATIC DISORDER
     Dosage: 0.4 MG
     Route: 048
  3. FINASTERIDE [Concomitant]
     Indication: PROSTATIC DISORDER
     Dosage: 5 MG
     Route: 048
  4. AMLODIPINE [Concomitant]
     Indication: CARDIAC DISORDER
     Dosage: 5 MG
     Route: 048
  5. ZOLOFT [Concomitant]
     Dosage: 0.5 MG
     Route: 048
  6. PRADAXA [Suspect]
     Indication: ATRIAL FIBRILLATION
     Dosage: 300 MG
     Route: 048
     Dates: start: 20110429
  7. METOPROLOL TARTRATE [Concomitant]
     Indication: CARDIAC DISORDER
     Dosage: 100 MG
     Route: 048

REACTIONS (12)
  - MUSCULOSKELETAL PAIN [None]
  - EPISTAXIS [None]
  - ERUCTATION [None]
  - GINGIVAL SWELLING [None]
  - ASTHENIA [None]
  - DYSPEPSIA [None]
  - CONSTIPATION [None]
  - FLATULENCE [None]
  - WHEEZING [None]
  - OROPHARYNGEAL PAIN [None]
  - BACK PAIN [None]
  - MYALGIA [None]
